FAERS Safety Report 5801081-0 (Version None)
Quarter: 2008Q3

REPORT INFORMATION
  Report Type: 
  Country: None (occurrence: None)
  Receive Date: 20080705
  Receipt Date: 20080627
  Transmission Date: 20090109
  Serious: Yes (Death)
  Sender: FDA-Public Use
  Company Number: US-ALLERGAN-0805662US

PATIENT
  Sex: Male
  Weight: 77.098 kg

DRUGS (7)
  1. BOTOX COSMETIC [Suspect]
     Indication: SKIN WRINKLING
  2. HYALURONIC ACID [Suspect]
     Indication: SKIN WRINKLING
     Dosage: UNK, SINGLE
     Route: 023
  3. BACTRIM [Concomitant]
     Indication: STAPHYLOCOCCAL INFECTION
     Dosage: UNK, BID
     Route: 048
     Dates: start: 20071024
  4. BACTRIM [Concomitant]
     Dosage: UNK, BID
     Route: 048
     Dates: start: 20071105
  5. CIPRO [Concomitant]
     Indication: STAPHYLOCOCCAL INFECTION
     Dosage: 500 MG, BID
     Route: 048
     Dates: start: 20071105
  6. MOTRIN [Concomitant]
     Indication: STAPHYLOCOCCAL INFECTION
     Dosage: 800 MG, TID
     Route: 048
     Dates: start: 20071024
  7. RIFAMPIN [Concomitant]
     Indication: STAPHYLOCOCCAL INFECTION
     Dosage: 300 MG, BID
     Route: 048
     Dates: start: 20071024

REACTIONS (1)
  - INTERSTITIAL LUNG DISEASE [None]
